FAERS Safety Report 5597943-2 (Version None)
Quarter: 2008Q1

REPORT INFORMATION
  Report Type: 
  Country: None (occurrence: None)
  Receive Date: 20080116
  Receipt Date: 20080110
  Transmission Date: 20080703
  Serious: Yes (Hospitalization)
  Sender: FDA-Public Use
  Company Number: WAES 0801FRA00037

PATIENT
  Age: 45 Year
  Sex: Male

DRUGS (6)
  1. ISENTRESS [Suspect]
     Indication: HIV INFECTION
     Dosage: 400 MG/BID PO
     Route: 048
     Dates: start: 20071022, end: 20071213
  2. TAB DARUNAVIR [Suspect]
     Indication: HIV INFECTION
     Dosage: 300 MG/DAILY PO
     Route: 048
     Dates: start: 20071022, end: 20071213
  3. CAP RITONAVIR [Suspect]
     Indication: HIV INFECTION
     Dosage: 100 MG/BID PO
     Route: 048
     Dates: start: 20071022, end: 20071213
  4. INJ ENFUVIRTIDE [Suspect]
     Indication: HIV INFECTION
     Dosage: 90 MG/BID SC
     Route: 058
     Dates: start: 20071022, end: 20071213
  5. TACROLIMUS [Suspect]
     Indication: LIVER TRANSPLANT
     Dosage: PO
     Route: 048
     Dates: start: 20071001
  6. MYCOPHENOLATE MOFETIL [Concomitant]

REACTIONS (6)
  - CD4 LYMPHOCYTES DECREASED [None]
  - DISEASE RECURRENCE [None]
  - DRUG INEFFECTIVE [None]
  - HEPATITIS C [None]
  - MYELOCYTOSIS [None]
  - RENAL FAILURE [None]
